FAERS Safety Report 8936334 (Version 2)
Quarter: 2012Q4

REPORT INFORMATION
  Report Type: 
  Country: FR (occurrence: FR)
  Receive Date: 20121130
  Receipt Date: 20121228
  Transmission Date: 20130627
  Serious: Yes (Hospitalization, Other)
  Sender: FDA-Public Use
  Company Number: FR-ELI_LILLY_AND_COMPANY-FR201211006338

PATIENT
  Age: 82 Year
  Sex: Female
  Weight: 76 kg

DRUGS (7)
  1. FORSTEO [Suspect]
     Indication: OSTEOPOROSIS
     Dosage: 20 ug, qd
     Route: 058
     Dates: start: 20110401, end: 20120421
  2. FORSTEO [Suspect]
     Dosage: 20 ug, qd
     Route: 058
     Dates: start: 20120524
  3. CELECTOL [Concomitant]
     Dosage: UNK, unknown
     Route: 065
  4. VASTEN [Concomitant]
     Dosage: UNK, unknown
     Route: 065
  5. ADANCOR [Concomitant]
     Dosage: UNK, unknown
     Route: 065
  6. PREVISCAN [Concomitant]
     Dosage: UNK, unknown
     Route: 065
  7. LASILIX [Concomitant]
     Dosage: 40 mg, qd

REACTIONS (2)
  - Femoral neck fracture [Recovered/Resolved]
  - Fall [Recovered/Resolved]
